FAERS Safety Report 6255419-3 (Version None)
Quarter: 2009Q3

REPORT INFORMATION
  Report Type: 
  Country: None (occurrence: None)
  Receive Date: 20090702
  Receipt Date: 20090626
  Transmission Date: 20100115
  Serious: Yes (Other)
  Sender: FDA-Public Use
  Company Number: CA-SP-2009-02743

PATIENT
  Age: 46 Year
  Sex: Female

DRUGS (3)
  1. TUBERSOL [Suspect]
     Indication: TUBERCULIN TEST
     Route: 023
  2. ATENOLOL TABLETS, BP [Concomitant]
  3. CRESTOR [Concomitant]

REACTIONS (3)
  - INJECTION SITE DERMATITIS [None]
  - INJECTION SITE PRURITUS [None]
  - VACCINATION SITE ERYTHEMA [None]
